FAERS Safety Report 5166003-7 (Version None)
Quarter: 2006Q4

REPORT INFORMATION
  Report Type: 
  Country: None (occurrence: None)
  Receive Date: 20061128
  Receipt Date: 20061114
  Transmission Date: 20070319
  Serious: Yes (Hospitalization)
  Sender: FDA-Public Use
  Company Number: CLOF-10352

PATIENT
  Age: 11 Year
  Sex: Female
  Weight: 34 kg

DRUGS (5)
  1. CLOFARABINE [Suspect]
     Indication: ACUTE LYMPHOCYTIC LEUKAEMIA
     Dosage: 35 MG QD X 5 IV
     Route: 042
     Dates: start: 20061014, end: 20061018
  2. ETOPOSIDE [Suspect]
     Indication: ACUTE LYMPHOCYTIC LEUKAEMIA
     Dosage: 120 MG QD X 5 IV
     Route: 042
     Dates: start: 20061014, end: 20061018
  3. CYCLOPHOSPHAMIDE [Suspect]
     Indication: ACUTE LYMPHOCYTIC LEUKAEMIA
     Dosage: 515 MG QD X 5 IV
     Route: 042
     Dates: start: 20061014, end: 20061018
  4. BACTRIM [Concomitant]
  5. VORICONAZOLE [Concomitant]

REACTIONS (11)
  - ABDOMINAL PAIN [None]
  - BLOOD AMYLASE INCREASED [None]
  - BLOOD BILIRUBIN INCREASED [None]
  - DIARRHOEA [None]
  - DRUG TOXICITY [None]
  - FEBRILE NEUTROPENIA [None]
  - LIPASE INCREASED [None]
  - NAUSEA [None]
  - SEPTIC SHOCK [None]
  - VENOOCCLUSIVE DISEASE [None]
  - VOMITING [None]
